FAERS Safety Report 20067998 (Version 2)
Quarter: 2021Q4

REPORT INFORMATION
  Report Type: Spontaneous
  Country: DE (occurrence: DE)
  Receive Date: 20211115
  Receipt Date: 20211213
  Transmission Date: 20220303
  Serious: Yes (Hospitalization, Other)
  Sender: FDA-Public Use
  Company Number: None

PATIENT
  Age: 80 Year
  Sex: Male
  Weight: 87 kg

DRUGS (1)
  1. CLOPIDOGREL [Suspect]
     Active Substance: CLOPIDOGREL BISULFATE
     Indication: Aphasia
     Dosage: STRENGTH: 75MG, CONTINUED USE
     Dates: start: 20211006

REACTIONS (8)
  - Aphasia [Recovered/Resolved]
  - Thrombosis [Recovered/Resolved]
  - Wound closure [Recovered/Resolved]
  - Condition aggravated [Unknown]
  - Pain [Not Recovered/Not Resolved]
  - Blood urine present [Recovered/Resolved]
  - Haematoma [Not Recovered/Not Resolved]
  - Language disorder [Recovered/Resolved]

NARRATIVE: CASE EVENT DATE: 20211007
